FAERS Safety Report 20458823 (Version 1)
Quarter: 2022Q1

REPORT INFORMATION
  Report Type: Spontaneous
  Country: CN (occurrence: CN)
  Receive Date: 20220211
  Receipt Date: 20220211
  Transmission Date: 20220424
  Serious: Yes (Other)
  Sender: FDA-Public Use
  Company Number: CN-SUN PHARMACEUTICAL INDUSTRIES LTD-2022R1-326076

PATIENT
  Age: 74 Year
  Sex: Male

DRUGS (4)
  1. CISPLATIN [Suspect]
     Active Substance: CISPLATIN
     Indication: Bladder cancer
     Dosage: 40 MILLIGRAM, D1-D3, Q3W
     Route: 065
     Dates: start: 201910
  2. GEMCITABINE [Suspect]
     Active Substance: GEMCITABINE
     Indication: Bladder cancer
     Dosage: 1 GRAM, D1, D8, Q3W
     Route: 065
     Dates: start: 201910
  3. CAMRELIZUMAB [Suspect]
     Active Substance: CAMRELIZUMAB
     Indication: Bladder cancer
     Dosage: 200 MILLIGRAM; D0, Q3W
     Route: 065
     Dates: start: 201910
  4. PACLITAXEL [Concomitant]
     Active Substance: PACLITAXEL
     Indication: Bladder cancer
     Dosage: 210 MILLIGRAM; Q3W
     Route: 065

REACTIONS (6)
  - Myelosuppression [Unknown]
  - Therapy partial responder [Unknown]
  - Gastrointestinal disorder [Unknown]
  - Liver function test abnormal [Unknown]
  - Renal impairment [Unknown]
  - Anaemia [Unknown]
